FAERS Safety Report 15704718 (Version 1)
Quarter: 2018Q4

REPORT INFORMATION
  Report Type: Report from Study
  Country: US (occurrence: US)
  Receive Date: 20181210
  Receipt Date: 20181210
  Transmission Date: 20190205
  Serious: Yes (Hospitalization)
  Sender: FDA-Public Use
  Company Number: US-BAYER-2018-221539

PATIENT
  Age: 76 Year
  Sex: Female

DRUGS (4)
  1. OXYBUTYNIN CHLORIDE. [Concomitant]
     Active Substance: OXYBUTYNIN CHLORIDE
  2. POTASSIUM [Concomitant]
     Active Substance: POTASSIUM
  3. LOSARTAN. [Concomitant]
     Active Substance: LOSARTAN
  4. NEXAVAR [Suspect]
     Active Substance: SORAFENIB
     Indication: HEPATOCELLULAR CARCINOMA
     Dosage: 400 MG, BID
     Route: 048
     Dates: start: 20181112

REACTIONS (5)
  - Nausea [None]
  - Confusional state [None]
  - Adverse reaction [Not Recovered/Not Resolved]
  - Dehydration [None]
  - Diarrhoea [Not Recovered/Not Resolved]

NARRATIVE: CASE EVENT DATE: 2018
